FAERS Safety Report 17111234 (Version 1)
Quarter: 2019Q4

REPORT INFORMATION
  Report Type: Spontaneous
  Country: PL (occurrence: PL)
  Receive Date: 20191204
  Receipt Date: 20191204
  Transmission Date: 20200122
  Serious: Yes (Other)
  Sender: FDA-Public Use
  Company Number: PL-MYLANLABS-2019M1117271

PATIENT

DRUGS (10)
  1. AZATHIOPRINE. [Suspect]
     Active Substance: AZATHIOPRINE
     Indication: AUTOIMMUNE HEPATITIS
     Dosage: 50 MILLIGRAM, DAILY
     Dates: start: 2012
  2. DASABUVIR [Interacting]
     Active Substance: DASABUVIR
     Indication: HEPATITIS C
  3. BUDESONIDE. [Interacting]
     Active Substance: BUDESONIDE
     Dosage: 3 MILLIGRAM, 3 TIMES A DAY
  4. OMBITASVIR W/PARITAPREVIR/RITONAVIR [Interacting]
     Active Substance: OMBITASVIR\PARITAPREVIR\RITONAVIR
     Indication: AUTOIMMUNE HEPATITIS
     Dosage: UNK (25 MG/150 MG/ 100 MG DAILY)
     Route: 065
  5. OMBITASVIR W/PARITAPREVIR/RITONAVIR [Interacting]
     Active Substance: OMBITASVIR\PARITAPREVIR\RITONAVIR
     Indication: HEPATITIS C
     Dosage: UNK
  6. AZATHIOPRINE. [Suspect]
     Active Substance: AZATHIOPRINE
     Indication: HEPATITIS C
     Dosage: UNK
  7. DASABUVIR [Interacting]
     Active Substance: DASABUVIR
     Indication: AUTOIMMUNE HEPATITIS
     Dosage: 500 MILLIGRAM, DAILY (TWO DOSES SHEDULED FOR 12 WEEKS)
     Route: 065
  8. BUDESONIDE. [Suspect]
     Active Substance: BUDESONIDE
     Indication: AUTOIMMUNE HEPATITIS
     Dosage: 3 MILLIGRAM, 3 TIMES A DAY
     Dates: start: 2012
  9. BUDESONIDE. [Interacting]
     Active Substance: BUDESONIDE
     Indication: HEPATITIS C
     Dosage: 3 MILLIGRAM, Q2D, EVERY OTHER DAY
  10. OMBITASVIR W/PARITAPREVIR/RITONAVIR [Interacting]
     Active Substance: OMBITASVIR\PARITAPREVIR\RITONAVIR
     Dosage: UNK

REACTIONS (2)
  - Cushing^s syndrome [Recovering/Resolving]
  - Drug interaction [Recovering/Resolving]
